FAERS Safety Report 15487698 (Version 1)
Quarter: 2018Q4

REPORT INFORMATION
  Report Type: Spontaneous
  Country: CA (occurrence: CA)
  Receive Date: 20181011
  Receipt Date: 20181011
  Transmission Date: 20190205
  Serious: Yes (Death, Other)
  Sender: FDA-Public Use
  Company Number: CA-JNJFOC-20181011776

PATIENT

DRUGS (2)
  1. LEVOFLOXACIN. [Suspect]
     Active Substance: LEVOFLOXACIN
     Indication: ANTIBIOTIC PROPHYLAXIS
     Route: 048
  2. LEVOFLOXACIN. [Suspect]
     Active Substance: LEVOFLOXACIN
     Indication: ANTIBIOTIC PROPHYLAXIS
     Route: 042

REACTIONS (8)
  - Arthralgia [Unknown]
  - Gait disturbance [Unknown]
  - Neutropenia [Unknown]
  - Infection [Unknown]
  - Pyrexia [Unknown]
  - Tendon disorder [Unknown]
  - Toxicity to various agents [Fatal]
  - Arthritis [Unknown]
